FAERS Safety Report 23839332 (Version 1)
Quarter: 2024Q2

REPORT INFORMATION
  Report Type: Spontaneous
  Country: GB (occurrence: GB)
  Receive Date: 20240509
  Receipt Date: 20240509
  Transmission Date: 20240716
  Serious: Yes (Death, Life-Threatening, Hospitalization, Other)
  Sender: FDA-Public Use
  Company Number: GB-009507513-2405GBR001090

PATIENT
  Age: 86 Year
  Sex: Male

DRUGS (1)
  1. PEMBROLIZUMAB [Suspect]
     Active Substance: PEMBROLIZUMAB
     Dosage: 200 MILLIGRAM

REACTIONS (5)
  - Immune-mediated myasthenia gravis [Fatal]
  - Immune-mediated myocarditis [Fatal]
  - Immune-mediated myositis [Fatal]
  - Immune-mediated hepatitis [Unknown]
  - Atrioventricular block complete [Unknown]
